FAERS Safety Report 18657665 (Version 2)
Quarter: 2021Q1

REPORT INFORMATION
  Report Type: Report from Study
  Country: US (occurrence: US)
  Receive Date: 20201224
  Receipt Date: 20210104
  Transmission Date: 20210419
  Serious: Yes (Death, Life-Threatening, Hospitalization, Other)
  Sender: FDA-Public Use
  Company Number: US-BRISTOL-MYERS SQUIBB COMPANY-BMS-2020-110180

PATIENT
  Age: 73 Year
  Sex: Male

DRUGS (4)
  1. INCOMPLETE FREUND^S ADJUVANT (MONTANIDE ISA 51 VG) [Suspect]
     Active Substance: INCOMPLETE FREUND^S ADJUVANT
     Indication: PLEURAL MESOTHELIOMA MALIGNANT
     Dosage: UNK
     Route: 065
     Dates: start: 20201028, end: 20201127
  2. GALINPEPIMUT?S [Suspect]
     Active Substance: GALINPEPIMUT-S
     Indication: PLEURAL MESOTHELIOMA MALIGNANT
     Dosage: UNK
     Route: 065
     Dates: start: 20201028, end: 20201127
  3. NIVOLUMAB [Suspect]
     Active Substance: NIVOLUMAB
     Indication: PLEURAL MESOTHELIOMA MALIGNANT
     Dosage: UNK
     Route: 065
     Dates: start: 20201028, end: 20201127
  4. GM?CSF [Suspect]
     Active Substance: GRANULOCYTE-MACROPHAGE COLONY-STIMULATING FACTOR
     Indication: PLEURAL MESOTHELIOMA MALIGNANT
     Dosage: UNK
     Route: 065
     Dates: start: 20201028, end: 20201127

REACTIONS (4)
  - Pneumonia [Unknown]
  - Pneumonitis [Unknown]
  - Sepsis [Fatal]
  - Atrial fibrillation [Unknown]

NARRATIVE: CASE EVENT DATE: 20201217
